FAERS Safety Report 19679889 (Version 1)
Quarter: 2021Q3

REPORT INFORMATION
  Report Type: Report from Study
  Country: US (occurrence: US)
  Receive Date: 20210810
  Receipt Date: 20210810
  Transmission Date: 20211014
  Serious: Yes (Hospitalization, Other)
  Sender: FDA-Public Use
  Company Number: US-TAKEDA-US201723686

PATIENT
  Age: 58 Year
  Sex: Female
  Weight: 61 kg

DRUGS (25)
  1. TEDUGLUTIDE [Suspect]
     Active Substance: TEDUGLUTIDE
     Dosage: 2.49 MILLIGRAM (0.05 MILLIGRAM/KILOGRAM), 7 DOSES PER WEEK
     Route: 065
     Dates: end: 20170314
  2. TEDUGLUTIDE [Suspect]
     Active Substance: TEDUGLUTIDE
     Dosage: 2.5 MILLIGRAM (0.05 MILLIGRAM/KILOGRAM), 7 DOSES PER WEEK
     Route: 065
     Dates: end: 20170808
  3. TEDUGLUTIDE [Suspect]
     Active Substance: TEDUGLUTIDE
     Dosage: 2.5 MILLIGRAM (0.04 MILLIGRAM/KILOGRAM DAILY DOSE), 7 DOSES PER WEEK
     Route: 065
     Dates: end: 20161031
  4. TEDUGLUTIDE [Suspect]
     Active Substance: TEDUGLUTIDE
     Dosage: 2.5 MILLIGRAM (0.04 MILLIGRAM/KILOGRAM DAILY DOSE), 7 DOSES PER WEEK
     Route: 065
     Dates: end: 20161031
  5. OXYCODONE [Concomitant]
     Active Substance: OXYCODONE
     Indication: PAIN
  6. TEDUGLUTIDE [Suspect]
     Active Substance: TEDUGLUTIDE
     Dosage: 2.5 MILLIGRAM (0.04 MILLIGRAM/KILOGRAM DAILY DOSE), 7 DOSES PER WEEK
     Route: 065
     Dates: end: 20161031
  7. TEDUGLUTIDE [Suspect]
     Active Substance: TEDUGLUTIDE
     Dosage: 2.5 MILLIGRAM (0.04 MILLIGRAM/KILOGRAM DAILY DOSE), 7 DOSES PER WEEK
     Route: 065
     Dates: end: 20161031
  8. TEDUGLUTIDE [Suspect]
     Active Substance: TEDUGLUTIDE
     Indication: SHORT-BOWEL SYNDROME
     Dosage: 2.49 MILLIGRAM (0.05 MILLIGRAM/KILOGRAM DAILY DOSE), 7 DOSES PER WEEK
     Route: 065
     Dates: end: 20160930
  9. TEDUGLUTIDE [Suspect]
     Active Substance: TEDUGLUTIDE
     Dosage: 5 MILLIGRAM (0.09 MILLIGRAM/KILOGRAM), 7 DOSES PER WEEK
     Route: 065
     Dates: end: 20161205
  10. TEDUGLUTIDE [Suspect]
     Active Substance: TEDUGLUTIDE
     Dosage: 2.5 MILLIGRAM (0.05 MILLIGRAM/KILOGRAM), 7 DOSES PER WEEK
     Route: 065
     Dates: end: 20170808
  11. VANCOMYCIN [Concomitant]
     Active Substance: VANCOMYCIN
     Indication: INFECTION
  12. MIDORINE [Concomitant]
     Active Substance: MIDODRINE
     Indication: HYPERTENSION
     Dosage: 7.5 MILLIGRAM, TID
     Route: 048
     Dates: end: 20161025
  13. TEDUGLUTIDE [Suspect]
     Active Substance: TEDUGLUTIDE
     Indication: SHORT-BOWEL SYNDROME
     Dosage: 2.49 MILLIGRAM (0.05 MILLIGRAM/KILOGRAM DAILY DOSE), 7 DOSES PER WEEK
     Route: 065
     Dates: end: 20160930
  14. TEDUGLUTIDE [Suspect]
     Active Substance: TEDUGLUTIDE
     Dosage: 5 MILLIGRAM (0.09 MILLIGRAM/KILOGRAM), 7 DOSES PER WEEK
     Route: 065
     Dates: end: 20161205
  15. TEDUGLUTIDE [Suspect]
     Active Substance: TEDUGLUTIDE
     Dosage: 2.49 MILLIGRAM (0.05 MILLIGRAM/KILOGRAM), 7 DOSES PER WEEK
     Route: 065
     Dates: end: 20170314
  16. TEDUGLUTIDE [Suspect]
     Active Substance: TEDUGLUTIDE
     Dosage: 2.49 MILLIGRAM (0.05 MILLIGRAM/KILOGRAM), 7 DOSES PER WEEK
     Route: 065
     Dates: end: 20170314
  17. TEDUGLUTIDE [Suspect]
     Active Substance: TEDUGLUTIDE
     Dosage: 2.49 MILLIGRAM (0.05 MILLIGRAM/KILOGRAM), 7 DOSES PER WEEK
     Route: 065
     Dates: end: 20170314
  18. ALTEPLASE. [Concomitant]
     Active Substance: ALTEPLASE
     Indication: PROPHYLAXIS
  19. TEDUGLUTIDE [Suspect]
     Active Substance: TEDUGLUTIDE
     Indication: SHORT-BOWEL SYNDROME
     Dosage: 2.49 MILLIGRAM (0.05 MILLIGRAM/KILOGRAM DAILY DOSE), 7 DOSES PER WEEK
     Route: 065
     Dates: end: 20160930
  20. TEDUGLUTIDE [Suspect]
     Active Substance: TEDUGLUTIDE
     Dosage: 5 MILLIGRAM (0.09 MILLIGRAM/KILOGRAM), 7 DOSES PER WEEK
     Route: 065
     Dates: end: 20161205
  21. TEDUGLUTIDE [Suspect]
     Active Substance: TEDUGLUTIDE
     Indication: SHORT-BOWEL SYNDROME
     Dosage: 2.49 MILLIGRAM (0.05 MILLIGRAM/KILOGRAM DAILY DOSE), 7 DOSES PER WEEK
     Route: 065
     Dates: end: 20160930
  22. TEDUGLUTIDE [Suspect]
     Active Substance: TEDUGLUTIDE
     Dosage: 5 MILLIGRAM (0.09 MILLIGRAM/KILOGRAM), 7 DOSES PER WEEK
     Route: 065
     Dates: end: 20161205
  23. TEDUGLUTIDE [Suspect]
     Active Substance: TEDUGLUTIDE
     Dosage: 2.5 MILLIGRAM (0.05 MILLIGRAM/KILOGRAM), 7 DOSES PER WEEK
     Route: 065
     Dates: end: 20170808
  24. TEDUGLUTIDE [Suspect]
     Active Substance: TEDUGLUTIDE
     Dosage: 2.5 MILLIGRAM (0.05 MILLIGRAM/KILOGRAM), 7 DOSES PER WEEK
     Route: 065
     Dates: end: 20170808
  25. LOPERAMIDE [Concomitant]
     Active Substance: LOPERAMIDE
     Indication: ENTEROCUTANEOUS FISTULA
     Dosage: 4 MILLIGRAM, QD
     Route: 048
     Dates: start: 20171113, end: 20171119

REACTIONS (4)
  - Bacteraemia [Recovered/Resolved]
  - Nausea [Not Recovered/Not Resolved]
  - Hypokalaemia [Recovered/Resolved]
  - Enterocutaneous fistula [Not Recovered/Not Resolved]

NARRATIVE: CASE EVENT DATE: 20160315
